FAERS Safety Report 7770301-8 (Version None)
Quarter: 2011Q3

REPORT INFORMATION
  Report Type: 
  Country: None (occurrence: None)
  Receive Date: 20110922
  Receipt Date: 20100812
  Transmission Date: 20111222
  Serious: No
  Sender: FDA-Public Use
  Company Number: US-ASTRAZENECA-2010SE38047

PATIENT
  Age: 33 Year
  Sex: Female

DRUGS (8)
  1. SEROQUEL XR [Suspect]
     Indication: DEPRESSION
     Route: 048
     Dates: start: 20100701
  2. SEROQUEL XR [Suspect]
     Indication: BIPOLAR DISORDER
     Route: 048
     Dates: start: 20100701
  3. TRICOR [Concomitant]
  4. VITAMIN TAB [Concomitant]
  5. PERCOCET [Concomitant]
  6. NIACIN [Concomitant]
  7. GLUCOPHAGE [Concomitant]
  8. LEVETIRACETAM [Concomitant]
     Dosage: THREE TIMES A DAT

REACTIONS (4)
  - TOOTHACHE [None]
  - MYALGIA [None]
  - THERAPEUTIC RESPONSE UNEXPECTED [None]
  - ARTHRALGIA [None]
